FAERS Safety Report 5071450-8 (Version None)
Quarter: 2006Q3

REPORT INFORMATION
  Report Type: 
  Country: None (occurrence: None)
  Receive Date: 20060804
  Receipt Date: 20060731
  Transmission Date: 20061208
  Serious: Yes (Death, Hospitalization)
  Sender: FDA-Public Use
  Company Number: US-GLAXOSMITHKLINE-A0614158A

PATIENT
  Age: 86 Year
  Sex: Male

DRUGS (3)
  1. COREG [Suspect]
     Indication: CARDIAC FAILURE CONGESTIVE
     Dosage: 25MG TWICE PER DAY
     Route: 048
  2. IRON [Concomitant]
  3. LASIX [Concomitant]

REACTIONS (8)
  - ANGINA PECTORIS [None]
  - BLOOD PRESSURE INCREASED [None]
  - CARDIAC FAILURE CONGESTIVE [None]
  - CEREBROVASCULAR ACCIDENT [None]
  - COMA [None]
  - DEATH [None]
  - DRUG ADMINISTRATION ERROR [None]
  - TREATMENT NONCOMPLIANCE [None]
